FAERS Safety Report 10537680 (Version 1)
Quarter: 2014Q4

REPORT INFORMATION
  Report Type: Spontaneous
  Country: US (occurrence: None)
  Receive Date: 20141021
  Receipt Date: 20141021
  Transmission Date: 20150529
  Serious: Yes (Other)
  Sender: FDA-Public Use
  Company Number: 2014SCAL000187

PATIENT
  Age: 32 Year
  Sex: Male

DRUGS (2)
  1. HYDROCHLOROTHIAZIDE (HYDROCHLOROTHIAZIDE 12.5 MG) UNKNOWN, 12.5 MG [Suspect]
     Active Substance: HYDROCHLOROTHIAZIDE
     Indication: HYPERTENSION
  2. LOSARTAN [Concomitant]
     Active Substance: LOSARTAN

REACTIONS (6)
  - Pyrexia [None]
  - Rhinorrhoea [None]
  - Pemphigoid [None]
  - Influenza like illness [None]
  - Cough [None]
  - Nausea [None]
